FAERS Safety Report 6678249-7 (Version None)
Quarter: 2010Q2

REPORT INFORMATION
  Report Type: 
  Country: None (occurrence: None)
  Receive Date: 20100408
  Receipt Date: 20100408
  Transmission Date: 20101027
  Serious: No
  Sender: FDA-Public Use
  Company Number: None

PATIENT
  Age: 66 Year
  Sex: Male

DRUGS (2)
  1. HEPARIN [Suspect]
     Indication: SURGERY
     Dosage: 1000 UNITS PER HOUR IV
     Route: 042
     Dates: start: 20100405
  2. HEPARIN [Suspect]
     Indication: TRANSPLANT
     Dosage: 1000 UNITS PER HOUR IV
     Route: 042
     Dates: start: 20100405

REACTIONS (1)
  - ACTIVATED PARTIAL THROMBOPLASTIN TIME ABNORMAL [None]
